FAERS Safety Report 9294870 (Version 1)
Quarter: 2013Q2

REPORT INFORMATION
  Report Type: Spontaneous
  Country: US (occurrence: US)
  Receive Date: 20130517
  Receipt Date: 20130517
  Transmission Date: 20140414
  Serious: Yes (Death, Hospitalization, Other)
  Sender: FDA-Public Use
  Company Number: US-TEVA-405295USA

PATIENT
  Sex: Female

DRUGS (3)
  1. EPIRUBICIN [Suspect]
     Indication: BREAST CANCER STAGE III
     Route: 065
  2. TAXOTERE [Suspect]
     Indication: BREAST CANCER STAGE III
     Route: 065
  3. CYCLOPHOSPHAMIDE [Suspect]
     Indication: BREAST CANCER STAGE III
     Route: 065

REACTIONS (7)
  - Hepatic failure [Fatal]
  - Coagulopathy [Fatal]
  - Retroperitoneal haemorrhage [Fatal]
  - Coma hepatic [Fatal]
  - Hepatorenal syndrome [Fatal]
  - Hepatitis B [Unknown]
  - Acute hepatitis B [Unknown]
